FAERS Safety Report 4709293-4 (Version None)
Quarter: 2005Q3

REPORT INFORMATION
  Report Type: 
  Country: None (occurrence: None)
  Receive Date: 20050708
  Receipt Date: 20050705
  Transmission Date: 20060218
  Serious: Yes (Death, Other)
  Sender: FDA-Public Use
  Company Number: US-BRISTOL-MYERS SQUIBB COMPANY-13026752

PATIENT
  Age: 76 Year
  Sex: Male

DRUGS (1)
  1. SERZONE [Suspect]
     Dates: start: 19950101, end: 20030101

REACTIONS (2)
  - HEPATIC ENZYME ABNORMAL [None]
  - HEPATIC NEOPLASM MALIGNANT [None]
